FAERS Safety Report 21585167 (Version 1)
Quarter: 2022Q4

REPORT INFORMATION
  Report Type: Spontaneous
  Country: CH (occurrence: CH)
  Receive Date: 20221111
  Receipt Date: 20221111
  Transmission Date: 20230113
  Serious: Yes (Other)
  Sender: FDA-Public Use
  Company Number: CH-SA-SAC20221109000009

PATIENT
  Age: 67 Year
  Sex: Female

DRUGS (4)
  1. SARCLISA [Suspect]
     Active Substance: ISATUXIMAB-IRFC
     Indication: Plasma cell myeloma
     Dosage: UNK
     Dates: start: 20200902, end: 20220329
  2. SARCLISA [Suspect]
     Active Substance: ISATUXIMAB-IRFC
     Dosage: UNK
     Dates: end: 20220517
  3. POMALIDOMIDE [Suspect]
     Active Substance: POMALIDOMIDE
     Indication: Plasma cell myeloma
     Dosage: UNK
     Dates: start: 20200902, end: 20220329
  4. DEXAMETHASONE [Suspect]
     Active Substance: DEXAMETHASONE
     Indication: Plasma cell myeloma
     Dosage: UNK
     Dates: start: 20200902, end: 20220329

REACTIONS (20)
  - Pneumonia moraxella [Unknown]
  - Pancytopenia [Unknown]
  - Thrombocytopenia [Unknown]
  - Back pain [Unknown]
  - Neck pain [Unknown]
  - Tachypnoea [Unknown]
  - Pathological fracture [Unknown]
  - Lung infiltration [Unknown]
  - CD8 lymphocytes increased [Unknown]
  - Bone lesion [Unknown]
  - Gammopathy [Unknown]
  - Condition aggravated [Unknown]
  - Disease progression [Unknown]
  - Pericardial mass [Unknown]
  - Diarrhoea [Unknown]
  - Vomiting [Unknown]
  - Chills [Unknown]
  - Bronchitis [Unknown]
  - Dyspnoea [Unknown]
  - Cough [Not Recovered/Not Resolved]

NARRATIVE: CASE EVENT DATE: 20201002
